FAERS Safety Report 5943584-4 (Version None)
Quarter: 2008Q4

REPORT INFORMATION
  Report Type: 
  Country: None (occurrence: None)
  Receive Date: 20081106
  Receipt Date: 20080919
  Transmission Date: 20090506
  Serious: No
  Sender: FDA-Public Use
  Company Number: A0745458A

PATIENT
  Age: 69 Year
  Sex: Female
  Weight: 77.3 kg

DRUGS (6)
  1. AMOXICILLIN [Suspect]
     Indication: DRUG USE FOR UNKNOWN INDICATION
     Route: 065
  2. COUMADIN [Concomitant]
     Indication: MITRAL VALVE DISEASE
     Dates: start: 19991001
  3. NEXIUM [Concomitant]
     Indication: GASTRIC DISORDER
     Dosage: 40MG UNKNOWN
     Route: 048
     Dates: start: 19990101
  4. MULTI-VITAMIN [Concomitant]
     Dosage: 1TAB PER DAY
     Route: 048
     Dates: start: 20000101
  5. CALCIUM + VITAMIN D [Concomitant]
     Dosage: 600MGD PER DAY
     Route: 048
     Dates: start: 19990101
  6. ASCORBIC ACID [Concomitant]
     Dosage: 500MGD PER DAY
     Route: 048
     Dates: start: 19990101

REACTIONS (1)
  - HEADACHE [None]
